FAERS Safety Report 18114264 (Version 1)
Quarter: 2020Q3

REPORT INFORMATION
  Report Type: Spontaneous
  Country: IT (occurrence: IT)
  Receive Date: 20200805
  Receipt Date: 20200805
  Transmission Date: 20201103
  Serious: Yes (Other)
  Sender: FDA-Public Use
  Company Number: IT-MYLANLABS-2020M1069408

PATIENT
  Age: 6 Decade
  Sex: Male

DRUGS (9)
  1. METHYLPREDNISOLONE. [Concomitant]
     Active Substance: METHYLPREDNISOLONE
     Indication: AUTOIMMUNE NEUROPATHY
     Dosage: 500 MILLIGRAM, QD
     Route: 042
     Dates: start: 200403
  2. IMMUNOGLOBULINS NOS [Concomitant]
     Active Substance: IMMUNE GLOBULIN NOS
     Dosage: 20% REDUCTION IN THE IMMUNOGLOBULIN (IVIG) DOSAGE
     Route: 042
  3. RITUXIMAB. [Concomitant]
     Active Substance: RITUXIMAB
     Indication: IMMUNE-MEDIATED NEUROPATHY
     Dosage: 375 MILLIGRAM/SQ. METER, QW(4 INFUSIONS IN 6 MONTHS APART)
     Route: 065
     Dates: start: 2014
  4. AZATHIOPRINE. [Concomitant]
     Active Substance: AZATHIOPRINE
     Indication: IMMUNE-MEDIATED NEUROPATHY
     Dosage: 2.5 MILLIGRAM/KILOGRAM, QD
     Route: 065
     Dates: start: 2011
  5. IMMUNOGLOBULINS NOS [Concomitant]
     Active Substance: IMMUNE GLOBULIN NOS
     Dosage: 1 G/KG OVER 2 DAYS
     Route: 042
  6. IMMUNOGLOBULINS NOS [Concomitant]
     Active Substance: IMMUNE GLOBULIN NOS
     Dosage: IV IMMUNE GLOBULIN DOSAGE WAS STARTED AND 6 MONTHS LATER INCREASED TO 112.5%
     Route: 042
  7. IMMUNOGLOBULINS NOS [Concomitant]
     Active Substance: IMMUNE GLOBULIN NOS
     Indication: IMMUNE-MEDIATED NEUROPATHY
     Dosage: 2 G/KG FOR 4 DAYS
     Route: 042
  8. PREDNISONE. [Suspect]
     Active Substance: PREDNISONE
     Indication: AUTOIMMUNE NEUROPATHY
     Dosage: 0.75 MILLIGRAM/KILOGRAM/DAY
     Route: 048
  9. IMMUNOGLOBULINS NOS [Concomitant]
     Active Substance: IMMUNE GLOBULIN NOS
     Dosage: DOSE TAPERED
     Route: 042

REACTIONS (1)
  - Drug ineffective [Unknown]
